FAERS Safety Report 6898068-6 (Version None)
Quarter: 2010Q3

REPORT INFORMATION
  Report Type: 
  Country: None (occurrence: None)
  Receive Date: 20100802
  Receipt Date: 20070821
  Transmission Date: 20110219
  Serious: No
  Sender: FDA-Public Use
  Company Number: US-PFIZER INC-2007069975

PATIENT

DRUGS (2)
  1. LYRICA [Suspect]
  2. DRUG USED IN DIABETES [Concomitant]

REACTIONS (1)
  - SWELLING [None]
